FAERS Safety Report 9311146 (Version 1)
Quarter: 2013Q2

REPORT INFORMATION
  Report Type: Spontaneous
  Country: US (occurrence: None)
  Receive Date: 20130523
  Receipt Date: 20130523
  Transmission Date: 20140414
  Serious: Yes (Hospitalization)
  Sender: FDA-Public Use
  Company Number: None

PATIENT
  Age: 49 Year
  Sex: Female

DRUGS (3)
  1. VALPROIC ACID [Suspect]
     Indication: BIPOLAR DISORDER
     Dates: start: 20110419, end: 20110607
  2. BENZAPRIL [Suspect]
     Indication: HYPERTENSION
     Dates: start: 20110411, end: 20110613
  3. HYDRALAZINE [Suspect]
     Indication: HYPERTENSION
     Dates: start: 20110325, end: 20110428

REACTIONS (9)
  - Abdominal pain upper [None]
  - Early satiety [None]
  - Alanine aminotransferase increased [None]
  - Aspartate aminotransferase increased [None]
  - Blood alkaline phosphatase increased [None]
  - Blood bilirubin increased [None]
  - Jaundice [None]
  - Hepatic necrosis [None]
  - Drug-induced liver injury [None]
